FAERS Safety Report 8019539-5 (Version None)
Quarter: 2012Q1

REPORT INFORMATION
  Report Type: 
  Country: None (occurrence: None)
  Receive Date: 20120103
  Receipt Date: 20111219
  Transmission Date: 20120608
  Serious: Yes (Hospitalization, Other)
  Sender: FDA-Public Use
  Company Number: US-WATSON-2011-22059

PATIENT
  Sex: Female
  Weight: 90.703 kg

DRUGS (10)
  1. PREPARATION H                      /00611001/ [Suspect]
     Indication: HAEMORRHOIDS
     Dosage: UNK
     Route: 065
     Dates: start: 20110101
  2. PREPARATION H                      /00611001/ [Suspect]
     Indication: SWELLING
  3. BOTOX [Suspect]
     Indication: MIGRAINE
     Dosage: UNK, INJECTION
     Route: 065
     Dates: start: 20110927
  4. PREPARATION H                      /00611001/ [Suspect]
     Indication: PAIN
  5. PREPARATION H                      /00611001/ [Suspect]
     Indication: FAECES HARD
  6. UNSPECIFIED NARCOTIC PAIN KILLERS [Suspect]
     Indication: PAIN
     Dosage: UNK
     Route: 065
  7. PREPARATION H                      /00611001/ [Suspect]
     Indication: CONSTIPATION
  8. LITHIUM CARBONATE [Concomitant]
     Indication: BIPOLAR DISORDER
     Dosage: UNK
     Route: 065
  9. FIORICET [Suspect]
     Indication: TENSION HEADACHE
     Dosage: UNK
     Route: 048
     Dates: start: 20110101
  10. CLONIDINE [Concomitant]
     Indication: HYPERTENSION
     Dosage: UNK
     Route: 065

REACTIONS (15)
  - MIGRAINE [None]
  - DRUG INEFFECTIVE [None]
  - FAECES HARD [None]
  - HAEMORRHOIDAL HAEMORRHAGE [None]
  - URETHRAL SPASM [None]
  - PAIN [None]
  - CONSTIPATION [None]
  - ANAL SPASM [None]
  - VAGINISMUS [None]
  - DYSSTASIA [None]
  - INFLUENZA LIKE ILLNESS [None]
  - INJECTION SITE PAIN [None]
  - ARTHRALGIA [None]
  - PERIPROCTITIS [None]
  - PHOTOPHOBIA [None]
